FAERS Safety Report 6495396-3 (Version None)
Quarter: 2009Q4

REPORT INFORMATION
  Report Type: 
  Country: None (occurrence: None)
  Receive Date: 20091214
  Receipt Date: 20090618
  Transmission Date: 20100525
  Serious: No
  Sender: FDA-Public Use
  Company Number: US-BRISTOL-MYERS SQUIBB COMPANY-14664783

PATIENT
  Age: 56 Year
  Sex: Female

DRUGS (4)
  1. ABILIFY [Suspect]
     Indication: BIPOLAR DISORDER
     Dosage: 2 MG PER DAY ON 10-JUN-09.
     Route: 048
     Dates: start: 20090601
  2. ABILIFY [Suspect]
     Indication: DEPRESSION
     Dosage: 2 MG PER DAY ON 10-JUN-09.
     Route: 048
     Dates: start: 20090601
  3. CYMBALTA [Concomitant]
  4. LYRICA [Concomitant]

REACTIONS (3)
  - OEDEMA PERIPHERAL [None]
  - SOMNOLENCE [None]
  - SWELLING FACE [None]
